FAERS Safety Report 15687327 (Version 2)
Quarter: 2024Q3

REPORT INFORMATION
  Report Type: Spontaneous
  Country: ES (occurrence: ES)
  Receive Date: 20181205
  Receipt Date: 20240926
  Transmission Date: 20241017
  Serious: Yes (Hospitalization, Other)
  Sender: AUROBINDO
  Company Number: ES-AUROBINDO-AUR-APL-2018-058110

PATIENT
  Age: 86 Year
  Sex: Female

DRUGS (4)
  1. FUROSEMIDE [Interacting]
     Active Substance: FUROSEMIDE
     Indication: Product used for unknown indication
     Dosage: 80 MILLIGRAM
     Route: 048
     Dates: start: 20170907, end: 20171224
  2. VALSARTAN [Interacting]
     Active Substance: VALSARTAN
     Indication: Product used for unknown indication
     Dosage: 320 MILLIGRAM
     Route: 048
     Dates: start: 20160321, end: 20171224
  3. ALDACTONE [Interacting]
     Active Substance: SPIRONOLACTONE
     Indication: Product used for unknown indication
     Dosage: 100 MILLIGRAM
     Route: 048
     Dates: start: 20171013, end: 20171224
  4. SULPIRIDE [Interacting]
     Active Substance: SULPIRIDE
     Indication: Vertigo
     Dosage: 50 MILLIGRAM
     Route: 048
     Dates: start: 20171221, end: 20171223

REACTIONS (2)
  - Hepatic encephalopathy [Recovered/Resolved]
  - Hyperkalaemia [Recovered/Resolved]

NARRATIVE: CASE EVENT DATE: 20171224
